FAERS Safety Report 5011080-7 (Version None)
Quarter: 2006Q2

REPORT INFORMATION
  Report Type: 
  Country: None (occurrence: None)
  Receive Date: 20060523
  Receipt Date: 20060520
  Transmission Date: 20061013
  Serious: Yes (Hospitalization)
  Sender: FDA-Public Use
  Company Number: 221141

PATIENT
  Age: 65 Year
  Sex: Male

DRUGS (7)
  1. AVASTIN [Suspect]
     Indication: COLON CANCER
     Dosage: 470 MG Q3W INTRAVENOUS
     Route: 042
     Dates: start: 20050913, end: 20051213
  2. OXALIPLATIN (OXALIPLATIN) [Suspect]
     Indication: COLON CANCER
     Dosage: 130 MG Q3W INTRAVENOUS
     Route: 042
     Dates: start: 20050913, end: 20051004
  3. MAXOLON [Concomitant]
  4. PANADOL (ACETAMINOPHEN) [Concomitant]
  5. OMEPRAZOLE [Concomitant]
  6. QUINAPRIL [Concomitant]
  7. CAPECITABINE (CAPECITABINE) [Suspect]
     Indication: COLON CANCER
     Dosage: 1650 MG BID ORAL
     Route: 048
     Dates: start: 20050913

REACTIONS (14)
  - ACUTE PRERENAL FAILURE [None]
  - BLOOD ALBUMIN INCREASED [None]
  - BLOOD BICARBONATE DECREASED [None]
  - BLOOD PH DECREASED [None]
  - BLOOD POTASSIUM INCREASED [None]
  - BLOOD SODIUM DECREASED [None]
  - CAMPYLOBACTER INTESTINAL INFECTION [None]
  - DEHYDRATION [None]
  - DIARRHOEA [None]
  - HEART RATE INCREASED [None]
  - PCO2 DECREASED [None]
  - PROTEIN TOTAL INCREASED [None]
  - RENAL FAILURE [None]
  - VOMITING [None]
